FAERS Safety Report 9331163 (Version 1)
Quarter: 2013Q2

REPORT INFORMATION
  Report Type: Spontaneous
  Country: US (occurrence: US)
  Receive Date: 20130605
  Receipt Date: 20130605
  Transmission Date: 20140414
  Serious: No
  Sender: FDA-Public Use
  Company Number: US-ASTRAZENECA-2013SE33615

PATIENT
  Age: 968 Month
  Sex: Female
  Weight: 71.2 kg

DRUGS (3)
  1. CRESTOR [Suspect]
     Indication: BLOOD CHOLESTEROL
     Route: 048
     Dates: start: 201211
  2. CRESTOR [Suspect]
     Indication: BLOOD CHOLESTEROL
     Route: 048
     Dates: start: 201305
  3. PRAVASTATIN [Concomitant]

REACTIONS (9)
  - Abasia [Unknown]
  - Peripheral coldness [Unknown]
  - Adverse event [Unknown]
  - Pain [Unknown]
  - Blood cholesterol increased [Unknown]
  - Pain in extremity [Unknown]
  - Muscle spasms [Unknown]
  - Pain in extremity [Unknown]
  - Drug dose omission [Unknown]
